FAERS Safety Report 6331649-7 (Version None)
Quarter: 2009Q3

REPORT INFORMATION
  Report Type: 
  Country: None (occurrence: None)
  Receive Date: 20090827
  Receipt Date: 20090825
  Transmission Date: 20100115
  Serious: Yes (Death, Hospitalization, Other)
  Sender: FDA-Public Use
  Company Number: PHHY2009NO35203

PATIENT
  Sex: Male

DRUGS (5)
  1. CERTICAN [Suspect]
     Indication: HEART TRANSPLANT
     Dosage: 0.5 MG, BID
     Dates: start: 20061031
  2. CERTICAN [Suspect]
     Dosage: 0.25 MG + 0.5 MG DAILY
     Dates: start: 20081202
  3. SANDIMMUNE [Suspect]
     Indication: HEART TRANSPLANT
     Dosage: 75 MG DAILY
     Dates: start: 19971029
  4. SANDIMMUNE [Suspect]
     Dosage: 25 MG, BID
     Dates: start: 20081202
  5. PREDNISOLONE [Concomitant]
     Indication: HEART TRANSPLANT
     Dosage: 7.5 MG DAILY
     Dates: start: 19971029

REACTIONS (9)
  - BRAIN HYPOXIA [None]
  - DILATATION VENTRICULAR [None]
  - DYSPNOEA [None]
  - ENDOTRACHEAL INTUBATION [None]
  - PO2 DECREASED [None]
  - PULMONARY EMBOLISM [None]
  - RENAL IMPAIRMENT [None]
  - RESPIRATORY THERAPY [None]
  - THROMBOLYSIS [None]
